FAERS Safety Report 6674027-3 (Version None)
Quarter: 2010Q2

REPORT INFORMATION
  Report Type: 
  Country: None (occurrence: None)
  Receive Date: 20100409
  Receipt Date: 20100402
  Transmission Date: 20101027
  Serious: Yes (Death, Hospitalization, Other)
  Sender: FDA-Public Use
  Company Number: JP-PFIZER INC-2010032119

PATIENT
  Age: 55 Year
  Sex: Male
  Weight: 54 kg

DRUGS (1)
  1. METHYLPREDNISOLONE SODIUM SUCCINATE [Suspect]
     Indication: INTERSTITIAL LUNG DISEASE
     Dosage: 1000 MG, UNK
     Route: 042

REACTIONS (5)
  - BRONCHIAL OBSTRUCTION [None]
  - DECREASED IMMUNE RESPONSIVENESS [None]
  - MUCORMYCOSIS [None]
  - PATHOGEN RESISTANCE [None]
  - RESPIRATORY FAILURE [None]
